FAERS Safety Report 5135981-4 (Version None)
Quarter: 2006Q4

REPORT INFORMATION
  Report Type: 
  Country: None (occurrence: None)
  Receive Date: 20061020
  Receipt Date: 20061005
  Transmission Date: 20070319
  Serious: Yes (Other)
  Sender: FDA-Public Use
  Company Number: 2006-241

PATIENT
  Age: 51 Year
  Sex: Male

DRUGS (1)
  1. CITALOPRAM [Suspect]
     Indication: DEPRESSION
     Dosage: 10MG ONCE A DAY
     Dates: start: 20060825, end: 20060825

REACTIONS (5)
  - ANAL HAEMORRHAGE [None]
  - ARTHRALGIA [None]
  - EPISTAXIS [None]
  - PHYSICAL ASSAULT [None]
  - SUICIDE ATTEMPT [None]
